FAERS Safety Report 14427677 (Version 1)
Quarter: 2018Q1

REPORT INFORMATION
  Report Type: Spontaneous
  Country: US (occurrence: US)
  Receive Date: 20180123
  Receipt Date: 20180123
  Transmission Date: 20180509
  Serious: No
  Sender: FDA-Public Use
  Company Number: US-AMGEN-USASP2016051905

PATIENT
  Age: 66 Year
  Sex: Male
  Weight: 85.71 kg

DRUGS (1)
  1. REPATHA [Suspect]
     Active Substance: EVOLOCUMAB
     Indication: PRODUCT USED FOR UNKNOWN INDICATION
     Dosage: UNK
     Route: 065
     Dates: start: 20160107

REACTIONS (1)
  - Blood creatine phosphokinase abnormal [Recovering/Resolving]

NARRATIVE: CASE EVENT DATE: 20160324
